FAERS Safety Report 23667906 (Version 1)
Quarter: 2024Q1

REPORT INFORMATION
  Report Type: Spontaneous
  Country: TR (occurrence: TR)
  Receive Date: 20240325
  Receipt Date: 20240325
  Transmission Date: 20240410
  Serious: Yes (Death)
  Sender: FDA-Public Use
  Company Number: TR-STRIDES ARCOLAB LIMITED-2024SP003407

PATIENT
  Age: 33 Year
  Sex: Male

DRUGS (4)
  1. ETOPOSIDE [Suspect]
     Active Substance: ETOPOSIDE
     Indication: Germ cell neoplasm
     Dosage: 450 MILLIGRAM/SQ. METER (ON DAYS 3, 5, AND 7)
     Route: 065
  2. PACLITAXEL [Suspect]
     Active Substance: PACLITAXEL
     Indication: Germ cell neoplasm
     Dosage: 75 MILLIGRAM/SQ. METER (ON DAYS 3, 5, AND 7)
     Route: 065
  3. CARBOPLATIN [Suspect]
     Active Substance: CARBOPLATIN
     Indication: Germ cell neoplasm
     Dosage: UNK (AUC OF 10 ON DAYS 3, 5, AND 7)
     Route: 065
  4. CYCLOPHOSPHAMIDE [Suspect]
     Active Substance: CYCLOPHOSPHAMIDE
     Indication: Germ cell neoplasm
     Dosage: 60 MILLIGRAM/KILOGRAM (ON DAYS 3 AND 5)
     Route: 065

REACTIONS (2)
  - Haemorrhage intracranial [Fatal]
  - Thrombocytopenia [Fatal]
